FAERS Safety Report 8767651 (Version 1)
Quarter: 2012Q4

REPORT INFORMATION
  Report Type: 
  Country: US (occurrence: US)
  Receive Date: 20120904
  Receipt Date: 20120904
  Transmission Date: 20130627
  Serious: No
  Sender: FDA-Public Use
  Company Number: US-AMGEN-USASP2012051107

PATIENT
  Age: 50 Year
  Sex: Female
  Weight: 88.44 kg

DRUGS (2)
  1. ENBREL [Suspect]
     Indication: RHEUMATOID ARTHRITIS
     Dosage: 50 mg, qwk
     Route: 058
  2. CIMZIA [Concomitant]
     Dosage: UNK

REACTIONS (1)
  - Therapeutic response decreased [Not Recovered/Not Resolved]
